FAERS Safety Report 24804764 (Version 2)
Quarter: 2025Q1

REPORT INFORMATION
  Report Type: Report from Study
  Country: BE (occurrence: BE)
  Receive Date: 20250103
  Receipt Date: 20250313
  Transmission Date: 20250409
  Serious: Yes (Other)
  Sender: CSL BEHRING
  Company Number: BE-BEH-2024169525

PATIENT
  Age: 84 Year
  Sex: Male

DRUGS (1)
  1. HIZENTRA [Suspect]
     Active Substance: HUMAN IMMUNOGLOBULIN G
     Indication: Primary immunodeficiency syndrome
     Dosage: 8 GRAM, QW
     Route: 058
     Dates: start: 20240305

REACTIONS (12)
  - Pneumonia [Fatal]
  - Septic shock [Fatal]
  - Lung neoplasm malignant [Fatal]
  - Hypotension [Fatal]
  - Acute kidney injury [Fatal]
  - Swelling [Unknown]
  - Erythema [Unknown]
  - Pruritus [Unknown]
  - Fatigue [Unknown]
  - Headache [Unknown]
  - Swelling [Unknown]
  - Erythema [Unknown]

NARRATIVE: CASE EVENT DATE: 20240305
